FAERS Safety Report 21877255 (Version 2)
Quarter: 2023Q2

REPORT INFORMATION
  Report Type: Report from Study
  Country: JP (occurrence: JP)
  Receive Date: 20230118
  Receipt Date: 20230418
  Transmission Date: 20230721
  Serious: Yes (Death, Hospitalization, Other)
  Sender: FDA-Public Use
  Company Number: JP-CELLTRION INC.-2021JP012709

PATIENT

DRUGS (30)
  1. INVESTIGATIONAL BIOSIMILARS [Suspect]
     Active Substance: INVESTIGATIONAL BIOSIMILARS
     Indication: HER2 positive gastric cancer
     Dosage: 340 MILLIGRAM EVERY ADMINISTRATION
     Route: 041
     Dates: start: 20210507, end: 20210507
  2. INVESTIGATIONAL BIOSIMILARS [Suspect]
     Active Substance: INVESTIGATIONAL BIOSIMILARS
     Dosage: 220 MILLIGRAM EVERY ADMINISTRATION
     Route: 041
     Dates: start: 20210601, end: 20210601
  3. INVESTIGATIONAL BIOSIMILARS [Suspect]
     Active Substance: INVESTIGATIONAL BIOSIMILARS
     Dosage: 220 MILLIGRAM EVERY ADMINISTRATION
     Route: 041
     Dates: start: 20210622, end: 20210622
  4. INVESTIGATIONAL BIOSIMILARS [Suspect]
     Active Substance: INVESTIGATIONAL BIOSIMILARS
     Dosage: 220 MILLIGRAM EVERY ADMINISTRATION
     Route: 041
     Dates: start: 20210803, end: 20210803
  5. INVESTIGATIONAL BIOSIMILARS [Suspect]
     Active Substance: INVESTIGATIONAL BIOSIMILARS
     Dosage: 220 MILLIGRAM EVERY ADMINISTRATION
     Route: 041
     Dates: start: 20210824, end: 20210824
  6. INVESTIGATIONAL BIOSIMILARS [Suspect]
     Active Substance: INVESTIGATIONAL BIOSIMILARS
     Dosage: 220 MILLIGRAM EVERY ADMINISTRATION
     Route: 041
     Dates: start: 20210914, end: 20210914
  7. CAPECITABINE [Suspect]
     Active Substance: CAPECITABINE
     Indication: HER2 positive gastric cancer
     Dosage: 1200 MILLIGRAM, QD
     Route: 048
     Dates: start: 20210507, end: 20210515
  8. CAPECITABINE [Suspect]
     Active Substance: CAPECITABINE
     Dosage: 600 MILLIGRAM, QD
     Route: 048
     Dates: start: 20210516, end: 20210520
  9. CAPECITABINE [Suspect]
     Active Substance: CAPECITABINE
     Dosage: 1200 MILLIGRAM, QD
     Route: 048
     Dates: start: 20210601, end: 20210606
  10. CAPECITABINE [Suspect]
     Active Substance: CAPECITABINE
     Dosage: 600 MILLIGRAM, QD
     Route: 048
     Dates: start: 20210607, end: 20210613
  11. CAPECITABINE [Suspect]
     Active Substance: CAPECITABINE
     Dosage: 600 MILLIGRAM, QD
     Route: 048
     Dates: start: 20210622, end: 20210706
  12. CAPECITABINE [Suspect]
     Active Substance: CAPECITABINE
     Dosage: 600 MILLIGRAM, QD
     Route: 048
     Dates: start: 20210803, end: 20210816
  13. CAPECITABINE [Suspect]
     Active Substance: CAPECITABINE
     Dosage: 600 MILLIGRAM, QD
     Route: 048
     Dates: start: 20210824, end: 20210906
  14. CAPECITABINE [Suspect]
     Active Substance: CAPECITABINE
     Dosage: 600 MILLIGRAM, QD
     Route: 048
     Dates: start: 20210914, end: 20210927
  15. OXALIPLATIN [Suspect]
     Active Substance: OXALIPLATIN
     Indication: HER2 positive gastric cancer
     Dosage: UNK
     Dates: start: 20210507, end: 20210622
  16. OXALIPLATIN [Suspect]
     Active Substance: OXALIPLATIN
     Dosage: 100 MILLIGRAM, QD
     Route: 041
     Dates: start: 20210601, end: 20210601
  17. OXALIPLATIN [Suspect]
     Active Substance: OXALIPLATIN
     Dosage: 100 MILLIGRAM, QD
     Route: 041
     Dates: start: 20210622, end: 20210622
  18. OXALIPLATIN [Suspect]
     Active Substance: OXALIPLATIN
     Dosage: 100 MILLIGRAM, QD
     Route: 041
     Dates: start: 20210803, end: 20210803
  19. OXALIPLATIN [Suspect]
     Active Substance: OXALIPLATIN
     Dosage: 100 MILLIGRAM, QD
     Route: 041
     Dates: start: 20210824, end: 20210824
  20. OXALIPLATIN [Suspect]
     Active Substance: OXALIPLATIN
     Dosage: 100 MILLIGRAM, QD
     Route: 041
     Dates: start: 20210914, end: 20210914
  21. PYRIDOXAL [Concomitant]
     Active Substance: PYRIDOXAL
     Indication: Prophylaxis
     Dosage: UNK
     Dates: start: 20210507, end: 20210928
  22. MOSAPRIDE CITRATE [Concomitant]
     Active Substance: MOSAPRIDE CITRATE
     Dosage: UNK
     Dates: start: 20210507, end: 20210928
  23. MIYA-BM [Concomitant]
     Active Substance: CLOSTRIDIUM BUTYRICUM SPORES STRAIN M-55
     Indication: Prophylaxis against diarrhoea
     Dosage: UNK
     Dates: start: 20210507, end: 20210928
  24. ZYPREXA [Concomitant]
     Active Substance: OLANZAPINE
     Indication: Prophylaxis of nausea and vomiting
     Dosage: UNK
     Dates: start: 20210507, end: 20210928
  25. NEXIUM [Concomitant]
     Active Substance: ESOMEPRAZOLE MAGNESIUM
     Indication: HER2 positive gastric cancer
     Dosage: UNK
     Dates: start: 20210507, end: 20210622
  26. NEXIUM [Concomitant]
     Active Substance: ESOMEPRAZOLE MAGNESIUM
     Indication: Haemorrhage prophylaxis
     Dosage: UNK
     Dates: start: 2021, end: 20210928
  27. SODIUM FERROUS CITRATE [Concomitant]
     Active Substance: SODIUM FERROUS CITRATE
     Indication: Anaemia prophylaxis
     Dosage: UNK
     Dates: start: 2021, end: 20210928
  28. AMLODIPINE BESYLATE [Concomitant]
     Active Substance: AMLODIPINE BESYLATE
     Indication: HER2 positive gastric cancer
     Dosage: UNK
     Dates: start: 2021
  29. CANDESARTAN [Concomitant]
     Active Substance: CANDESARTAN
     Indication: Hypertension
     Dosage: UNK
     Dates: start: 2021
  30. MAGNESIUM OXIDE [Concomitant]
     Active Substance: MAGNESIUM OXIDE
     Indication: Constipation prophylaxis
     Dosage: UNK
     Dates: start: 20210615

REACTIONS (7)
  - HER2 positive gastric cancer [Fatal]
  - Pneumonia [Recovering/Resolving]
  - Alanine aminotransferase increased [Recovered/Resolved]
  - Aspartate aminotransferase increased [Recovered/Resolved]
  - Decreased appetite [Recovered/Resolved]
  - Constipation [Recovered/Resolved]
  - Underdose [Unknown]

NARRATIVE: CASE EVENT DATE: 20210507
